FAERS Safety Report 5700106-0 (Version None)
Quarter: 2008Q2

REPORT INFORMATION
  Report Type: 
  Country: None (occurrence: None)
  Receive Date: 20080410
  Receipt Date: 20080401
  Transmission Date: 20081010
  Serious: Yes (Other)
  Sender: FDA-Public Use
  Company Number: RU-ABBOTT-08P-251-0444755-00

PATIENT
  Age: 14 Year
  Sex: Female

DRUGS (5)
  1. DEPAKENE [Suspect]
     Indication: CEREBRAL PALSY
     Route: 048
     Dates: start: 20080101
  2. DEPAKENE [Suspect]
     Route: 048
     Dates: start: 20000101, end: 20060101
  3. DEPAKENE [Suspect]
     Route: 048
     Dates: start: 20060101, end: 20080101
  4. DIAZEPAM [Concomitant]
     Indication: CONVULSION
     Route: 048
     Dates: start: 20030101
  5. DIAZEPAM [Concomitant]
     Route: 048
     Dates: start: 20030101

REACTIONS (4)
  - CONVULSION [None]
  - DRUG INEFFECTIVE [None]
  - PHARMACEUTICAL PRODUCT COUNTERFEIT [None]
  - WRONG TECHNIQUE IN DRUG USAGE PROCESS [None]
